FAERS Safety Report 15814005 (Version 1)
Quarter: 2019Q1

REPORT INFORMATION
  Report Type: Spontaneous
  Country: CA (occurrence: CA)
  Receive Date: 20190111
  Receipt Date: 20190111
  Transmission Date: 20190417
  Serious: Yes (Other)
  Sender: FDA-Public Use
  Company Number: CA-PFIZER INC-2019010134

PATIENT
  Age: 47 Year
  Sex: Male

DRUGS (13)
  1. MYCOPHENOLATE [Concomitant]
     Active Substance: MYCOPHENOLIC ACID
     Indication: LIVER TRANSPLANT
     Dosage: 1000 MG, 2X/DAY
  2. APIXABAN [Concomitant]
     Active Substance: APIXABAN
     Dosage: 5 MG, 2X/DAY
  3. PAROXETINE. [Concomitant]
     Active Substance: PAROXETINE
     Dosage: 20 MG, DAILY
  4. BUDESONIDE. [Concomitant]
     Active Substance: BUDESONIDE
     Dosage: 6 MG, DAILY
  5. SIROLIMUS. [Suspect]
     Active Substance: SIROLIMUS
     Dosage: 3 MG, 1X/DAY
  6. CALCIUM [Concomitant]
     Active Substance: CALCIUM
     Dosage: 1 DF, DAILY
  7. PANTOPRAZOLE [Concomitant]
     Active Substance: PANTOPRAZOLE
     Dosage: 40 MG, DAILY
  8. VITAMIN B1 [Concomitant]
     Active Substance: THIAMINE HYDROCHLORIDE
     Dosage: 1 DF, DAILY
  9. VITAMIN D [Concomitant]
     Active Substance: CHOLECALCIFEROL
     Dosage: 2000 IU, DAILY
  10. PREDNISONE. [Concomitant]
     Active Substance: PREDNISONE
     Dosage: 40 MG, 1X/DAY
     Route: 048
     Dates: start: 20190104
  11. BUDESONIDE. [Concomitant]
     Active Substance: BUDESONIDE
     Dosage: 9 UNK, UNK
     Dates: start: 2017
  12. METRONIDAZOLE. [Concomitant]
     Active Substance: METRONIDAZOLE
     Dosage: 500 MG, 2X/DAY
  13. URSODIOL. [Concomitant]
     Active Substance: URSODIOL
     Dosage: 500 MG, 2X/DAY

REACTIONS (1)
  - Colitis ulcerative [Unknown]
